FAERS Safety Report 7492043-9 (Version None)
Quarter: 2011Q2

REPORT INFORMATION
  Report Type: 
  Country: None (occurrence: None)
  Receive Date: 20110518
  Receipt Date: 20110518
  Transmission Date: 20111010
  Serious: Yes (Death)
  Sender: FDA-Public Use
  Company Number: None

PATIENT
  Age: 18 Month
  Sex: Female

DRUGS (1)
  1. TYLENOL DYE FREE CHERRY FLAVORED CONCENTRATED INFANT DROPS [Suspect]
     Dosage: ONCE A DAY
     Dates: start: 20100201, end: 20100421

REACTIONS (1)
  - LIQUID PRODUCT PHYSICAL ISSUE [None]
